FAERS Safety Report 8905559 (Version 2)
Quarter: 2012Q4

REPORT INFORMATION
  Report Type: 
  Country: JP (occurrence: JP)
  Receive Date: 20121111
  Receipt Date: 20121214
  Transmission Date: 20130627
  Serious: Yes (Other)
  Sender: FDA-Public Use
  Company Number: PHHY2012JP103200

PATIENT
  Age: 72 Year
  Sex: Male

DRUGS (5)
  1. ZOMETA [Suspect]
     Indication: METASTASES TO BONE
     Dosage: 4 mg, over 15 min every 3 4 weeks
     Route: 041
     Dates: start: 20090929
  2. CISPLATIN [Suspect]
     Indication: METASTASES TO BONE
     Dosage: 80 mg/m2, day 1 every 3-4 weeks
     Route: 041
     Dates: start: 20090929
  3. DOCETAXEL [Concomitant]
     Indication: METASTASES TO BONE
     Dosage: 60 mg/m2, on day 1 every 3-4 weeks
     Route: 041
     Dates: start: 20090929
  4. FLUID/ELECTROLYTE REPLACEMENT THERAPY [Concomitant]
     Indication: DEHYDRATION
     Dosage: 2500 mg to 3000ml
  5. STEROIDS NOS [Concomitant]
     Dosage: UNK UKN, UNK

REACTIONS (1)
  - Cardiac failure [Recovered/Resolved]
